FAERS Safety Report 5913290-0 (Version None)
Quarter: 2008Q4

REPORT INFORMATION
  Report Type: 
  Country: None (occurrence: None)
  Receive Date: 20081007
  Receipt Date: 20080926
  Transmission Date: 20090506
  Serious: Yes (Other)
  Sender: FDA-Public Use
  Company Number: GXKR2008DE09267

PATIENT
  Age: 66 Year
  Sex: Male
  Weight: 70 kg

DRUGS (4)
  1. TRAMADOL HCL [Suspect]
     Indication: PAIN
     Dosage: SEE IMAGE
     Route: 042
  2. TRAMADOL HCL [Suspect]
     Indication: POSTOPERATIVE ANALGESIA
     Dosage: SEE IMAGE
     Route: 042
  3. NIFEDIPINE [Concomitant]
  4. DIPYRONE (METAMIZOLE SODIUM) [Concomitant]

REACTIONS (9)
  - CYTOGENETIC ABNORMALITY [None]
  - FATIGUE [None]
  - LOSS OF CONSCIOUSNESS [None]
  - MIOSIS [None]
  - PAIN [None]
  - RESPIRATORY DEPRESSION [None]
  - RESPIRATORY FAILURE [None]
  - SOMNOLENCE [None]
  - UNRESPONSIVE TO STIMULI [None]
